FAERS Safety Report 20997933 (Version 1)
Quarter: 2022Q2

REPORT INFORMATION
  Report Type: Spontaneous
  Country: FR (occurrence: FR)
  Receive Date: 20220623
  Receipt Date: 20220623
  Transmission Date: 20220721
  Serious: Yes (Death, Life-Threatening)
  Sender: FDA-Public Use
  Company Number: None

PATIENT
  Age: 80 Year
  Sex: Male

DRUGS (1)
  1. PACLITAXEL [Suspect]
     Active Substance: PACLITAXEL
     Indication: Lung carcinoma cell type unspecified stage IV
     Route: 041
     Dates: start: 20220407, end: 20220407

REACTIONS (2)
  - Anaphylactic shock [Recovered/Resolved]
  - Arteriospasm coronary [Fatal]

NARRATIVE: CASE EVENT DATE: 20220407
